FAERS Safety Report 19810657 (Version 1)
Quarter: 2021Q3

REPORT INFORMATION
  Report Type: Spontaneous
  Country: CA (occurrence: CA)
  Receive Date: 20210909
  Receipt Date: 20210909
  Transmission Date: 20211014
  Serious: Yes (Other)
  Sender: FDA-Public Use
  Company Number: CA-TEVA-2021-CA-1948788

PATIENT
  Age: 61 Year
  Sex: Female

DRUGS (16)
  1. APIXABAN [Concomitant]
     Active Substance: APIXABAN
  2. UPTRAVI [Concomitant]
     Active Substance: SELEXIPAG
  3. LEVOTHYROXINE. [Concomitant]
     Active Substance: LEVOTHYROXINE
  4. METOLAZONE. [Concomitant]
     Active Substance: METOLAZONE
  5. DIGOXIN. [Concomitant]
     Active Substance: DIGOXIN
  6. SILDENAFIL CITRATE. [Suspect]
     Active Substance: SILDENAFIL CITRATE
     Dosage: 60 MILLIGRAM DAILY;
     Route: 048
  7. MACITENTAN [Concomitant]
     Active Substance: MACITENTAN
  8. POTASSIUM [Concomitant]
     Active Substance: POTASSIUM
  9. SILDENAFIL CITRATE. [Suspect]
     Active Substance: SILDENAFIL CITRATE
     Indication: CONNECTIVE TISSUE DISORDER
     Dosage: 60 MILLIGRAM DAILY;
     Route: 048
  10. TRACLEER [Concomitant]
     Active Substance: BOSENTAN
     Dosage: 125 MILLIGRAM DAILY;
  11. SELEXIPAG [Concomitant]
     Active Substance: SELEXIPAG
  12. SILDENAFIL CITRATE. [Suspect]
     Active Substance: SILDENAFIL CITRATE
     Indication: PULMONARY ARTERIAL HYPERTENSION
     Dosage: 60 MILLIGRAM DAILY;
     Route: 048
  13. SILDENAFIL CITRATE. [Suspect]
     Active Substance: SILDENAFIL CITRATE
     Dosage: 60 MILLIGRAM DAILY;
     Route: 048
  14. LASIX [Concomitant]
     Active Substance: FUROSEMIDE
  15. LANSOPRAZOLE. [Concomitant]
     Active Substance: LANSOPRAZOLE
  16. OPSUMIT [Concomitant]
     Active Substance: MACITENTAN

REACTIONS (13)
  - Nausea [Not Recovered/Not Resolved]
  - Oedema peripheral [Not Recovered/Not Resolved]
  - Pain in extremity [Not Recovered/Not Resolved]
  - Product dose omission in error [Not Recovered/Not Resolved]
  - Headache [Not Recovered/Not Resolved]
  - Pain [Not Recovered/Not Resolved]
  - Cataract [Not Recovered/Not Resolved]
  - Intentional product misuse [Not Recovered/Not Resolved]
  - Arthralgia [Not Recovered/Not Resolved]
  - Diarrhoea [Not Recovered/Not Resolved]
  - Dyspnoea [Not Recovered/Not Resolved]
  - Peripheral swelling [Not Recovered/Not Resolved]
  - Sinusitis [Not Recovered/Not Resolved]
